FAERS Safety Report 8463609-4 (Version None)
Quarter: 2012Q2

REPORT INFORMATION
  Report Type: 
  Country: None (occurrence: None)
  Receive Date: 20120625
  Receipt Date: 20120621
  Transmission Date: 20120825
  Serious: No
  Sender: FDA-Public Use
  Company Number: US-TEVA-344932USA

PATIENT
  Age: 56 Year
  Sex: Male

DRUGS (1)
  1. COPAXONE [Suspect]
     Indication: MULTIPLE SCLEROSIS

REACTIONS (5)
  - HYPOAESTHESIA [None]
  - FATIGUE [None]
  - PARAESTHESIA [None]
  - HYPOKINESIA [None]
  - MULTIPLE SCLEROSIS [None]
